FAERS Safety Report 16649141 (Version 2)
Quarter: 2019Q3

REPORT INFORMATION
  Report Type: Spontaneous
  Country: US (occurrence: US)
  Receive Date: 20190730
  Receipt Date: 20190805
  Transmission Date: 20191004
  Serious: No
  Sender: FDA-Public Use
  Company Number: US-PFIZER INC-2019324522

PATIENT
  Age: 38 Year

DRUGS (1)
  1. PREMARIN [Suspect]
     Active Substance: ESTROGENS, CONJUGATED
     Dosage: UNK, DAILY

REACTIONS (4)
  - Fall [Unknown]
  - Joint injury [Unknown]
  - Wrong technique in product usage process [Unknown]
  - Hot flush [Not Recovered/Not Resolved]
